FAERS Safety Report 8449098-4 (Version None)
Quarter: 2012Q2

REPORT INFORMATION
  Report Type: 
  Country: None (occurrence: None)
  Receive Date: 20120619
  Receipt Date: 20120608
  Transmission Date: 20120825
  Serious: Yes (Hospitalization, Other)
  Sender: FDA-Public Use
  Company Number: US-ACTELION-A-NJ2012-59841

PATIENT

DRUGS (8)
  1. SILDENAFIL [Concomitant]
  2. NORETHINDRONE [Concomitant]
  3. TRAMADOL HCL [Concomitant]
  4. FEXOFENADINE [Concomitant]
  5. FLUTICASONE PROPIONATE/SALMETEROL [Concomitant]
  6. PROMETHAZINE [Concomitant]
  7. EPOPROSTENOL SODIUM [Suspect]
     Indication: PULMONARY ARTERIAL HYPERTENSION
     Dosage: 27.5 NG/KG, PER MIN
     Route: 041
     Dates: start: 20100426
  8. ALPRAZOLAM [Concomitant]

REACTIONS (2)
  - LIVER TRANSPLANT [None]
  - THROMBOCYTOPENIA [None]
